FAERS Safety Report 12776610 (Version 1)
Quarter: 2016Q3

REPORT INFORMATION
  Report Type: Spontaneous
  Country: US (occurrence: US)
  Receive Date: 20160923
  Receipt Date: 20160923
  Transmission Date: 20161109
  Serious: No
  Sender: FDA-Public Use
  Company Number: US-TARO-2016TAR00165

PATIENT
  Age: 65 Year
  Sex: Male
  Weight: 81.63 kg

DRUGS (2)
  1. HYDROCORTISONE VALERATE CREAM USP 0.2% [Suspect]
     Active Substance: HYDROCORTISONE VALERATE
     Indication: PSORIASIS
     Dosage: MINIMAL AMOUNT TO THE FACE, UNDERARMS AND GROIN, AS NEEDED
     Route: 061
     Dates: start: 201601, end: 201601
  2. HYDROCORTISONE VALERATE CREAM USP 0.2% [Suspect]
     Active Substance: HYDROCORTISONE VALERATE
     Dosage: MINIMAL AMOUNT TO THE FACE, UNDERARMS AND GROIN, ONCE
     Route: 061
     Dates: start: 201602, end: 201602

REACTIONS (3)
  - Drug ineffective [Unknown]
  - Application site irritation [Recovered/Resolved]
  - Application site pain [Recovered/Resolved]

NARRATIVE: CASE EVENT DATE: 201601
